FAERS Safety Report 4661218-6 (Version None)
Quarter: 2005Q2

REPORT INFORMATION
  Report Type: 
  Country: None (occurrence: None)
  Receive Date: 20050513
  Receipt Date: 20050119
  Transmission Date: 20051028
  Serious: Yes (Other)
  Sender: FDA-Public Use
  Company Number: PHBS2005NZ01232

PATIENT
  Age: 42 Year
  Sex: Female

DRUGS (3)
  1. CLOZARIL [Suspect]
     Dosage: 300 MG/D
     Route: 048
     Dates: start: 20041217
  2. KLIOGEST [Concomitant]
     Dosage: 1 TAB/D
     Route: 048
  3. RANITIDINE [Concomitant]
     Dosage: 150 MG/D
     Route: 065

REACTIONS (6)
  - DRUG LEVEL DECREASED [None]
  - HAEMOCHROMATOSIS [None]
  - PLATELET COUNT DECREASED [None]
  - POLYCYTHAEMIA [None]
  - THROMBOCYTHAEMIA [None]
  - WEIGHT DECREASED [None]
